FAERS Safety Report 12752548 (Version 3)
Quarter: 2017Q1

REPORT INFORMATION
  Report Type: Spontaneous
  Country: JP (occurrence: JP)
  Receive Date: 20160915
  Receipt Date: 20170323
  Transmission Date: 20170428
  Serious: Yes (Hospitalization)
  Sender: FDA-Public Use
  Company Number: JP-SA-2016SA170843

PATIENT
  Age: 59 Year
  Sex: Female

DRUGS (14)
  1. CALCIUM LEVOFOLINATE [Concomitant]
     Active Substance: LEVOLEUCOVORIN CALCIUM
     Route: 065
     Dates: start: 201406
  2. VECTIBIX [Concomitant]
     Active Substance: PANITUMUMAB
     Route: 065
     Dates: start: 201411
  3. ELPLAT [Suspect]
     Active Substance: OXALIPLATIN
     Indication: RECTAL CANCER
     Dosage: INJECTION
     Route: 041
     Dates: start: 201406, end: 201411
  4. VECTIBIX [Concomitant]
     Active Substance: PANITUMUMAB
     Route: 065
     Dates: start: 201406
  5. FLUOROURACIL. [Concomitant]
     Active Substance: FLUOROURACIL
     Route: 042
     Dates: start: 201411
  6. PAROXETINE HYDROCHLORIDE. [Concomitant]
     Active Substance: PAROXETINE HYDROCHLORIDE
     Route: 048
  7. CALCIUM LEVOFOLINATE [Concomitant]
     Active Substance: LEVOLEUCOVORIN CALCIUM
     Route: 065
     Dates: start: 201411
  8. ROSUVASTATIN CALCIUM. [Concomitant]
     Active Substance: ROSUVASTATIN CALCIUM
     Route: 065
  9. ESOMEPRAZOLE MAGNESIUM HYDRATE [Concomitant]
     Route: 065
  10. FLUOROURACIL. [Concomitant]
     Active Substance: FLUOROURACIL
     Route: 042
     Dates: start: 201411
  11. FLUOROURACIL. [Concomitant]
     Active Substance: FLUOROURACIL
     Route: 040
     Dates: start: 201406
  12. OTERACIL POTASSIUM/GIMERACIL/TEGAFUR [Concomitant]
     Route: 048
  13. LORMETAZEPAM [Concomitant]
     Active Substance: LORMETAZEPAM
     Route: 065
  14. OLMESARTAN MEDOXOMIL. [Concomitant]
     Active Substance: OLMESARTAN MEDOXOMIL
     Route: 065

REACTIONS (7)
  - Haematemesis [Recovering/Resolving]
  - Splenomegaly [Unknown]
  - Portal hypertension [Unknown]
  - Thrombosis [Recovering/Resolving]
  - Rash [Unknown]
  - Platelet count decreased [Unknown]
  - Oesophageal varices haemorrhage [Recovering/Resolving]

NARRATIVE: CASE EVENT DATE: 201406
